FAERS Safety Report 5954697-5 (Version None)
Quarter: 2008Q4

REPORT INFORMATION
  Report Type: 
  Country: None (occurrence: None)
  Receive Date: 20081117
  Receipt Date: 20081106
  Transmission Date: 20090506
  Serious: Yes (Other)
  Sender: FDA-Public Use
  Company Number: PHHY2008BR27544

PATIENT
  Sex: Female

DRUGS (4)
  1. TRILEPTAL [Suspect]
     Indication: EPILEPSY
     Dosage: 300 MG, TID
     Route: 048
     Dates: start: 20000101
  2. TRILEPTAL [Suspect]
     Dosage: 600 MG, TID
     Route: 048
     Dates: start: 20040101
  3. ASPIRIN [Concomitant]
     Indication: CIRCULATING ANTICOAGULANT
     Dosage: UNK
     Route: 048
  4. PROTOS (STRONTIUM RANELATE) [Concomitant]
     Indication: OSTEOPOROSIS
     Dosage: 2 G, ONE SACHET TWO HOURS AFTER DINNER

REACTIONS (23)
  - ABASIA [None]
  - ABNORMAL BEHAVIOUR [None]
  - ANAEMIA [None]
  - APATHY [None]
  - ASTHENIA [None]
  - BLOOD POTASSIUM DECREASED [None]
  - BLOOD SODIUM DECREASED [None]
  - DECREASED APPETITE [None]
  - DIARRHOEA [None]
  - DYSPHONIA [None]
  - FALL [None]
  - MEMORY IMPAIRMENT [None]
  - MOVEMENT DISORDER [None]
  - NAUSEA [None]
  - PETIT MAL EPILEPSY [None]
  - QUALITY OF LIFE DECREASED [None]
  - REFLUX OESOPHAGITIS [None]
  - SOMNOLENCE [None]
  - SYNCOPE [None]
  - TREMOR [None]
  - URINARY RETENTION [None]
  - VISION BLURRED [None]
  - VOMITING [None]
